FAERS Safety Report 18641091 (Version 1)
Quarter: 2020Q4

REPORT INFORMATION
  Report Type: Spontaneous
  Country: US (occurrence: US)
  Receive Date: 20201221
  Receipt Date: 20201221
  Transmission Date: 20210114
  Serious: No
  Sender: FDA-Public Use
  Company Number: US-ASTRAZENECA-2020SF58980

PATIENT
  Sex: Male
  Weight: 63.5 kg

DRUGS (1)
  1. FASENRA [Suspect]
     Active Substance: BENRALIZUMAB
     Indication: CHRONIC SINUSITIS
     Route: 058

REACTIONS (6)
  - Sneezing [Unknown]
  - Off label use [Unknown]
  - Nasal congestion [Unknown]
  - Intentional product misuse [Unknown]
  - Dyspnoea [Unknown]
  - Rhinorrhoea [Unknown]
